FAERS Safety Report 7293090 (Version 3)
Quarter: 2019Q1

REPORT INFORMATION
  Report Type: Spontaneous
  Country: GB (occurrence: GB)
  Receive Date: 20100224
  Receipt Date: 20190226
  Transmission Date: 20190418
  Serious: Yes (Hospitalization, Disabling)
  Sender: FDA-Public Use
  Company Number: GB-PFIZER INC-2010019475

PATIENT
  Age: 44 Year
  Sex: Female
  Weight: 65.5 kg

DRUGS (2)
  1. CHAMPIX [Suspect]
     Active Substance: VARENICLINE TARTRATE
     Indication: SMOKING CESSATION THERAPY
     Dosage: 1 DF, 2X/DAY
     Route: 048
     Dates: start: 20091020, end: 20091104
  2. DEPO-PROVERA [Concomitant]
     Active Substance: MEDROXYPROGESTERONE ACETATE
     Indication: CONTRACEPTION
     Dosage: 150 MG, UNK
     Route: 030
     Dates: start: 20001215

REACTIONS (2)
  - Facial paresis [Not Recovered/Not Resolved]
  - Migraine [Recovering/Resolving]

NARRATIVE: CASE EVENT DATE: 20091102
